FAERS Safety Report 9373402 (Version 1)
Quarter: 2013Q2

REPORT INFORMATION
  Report Type: Spontaneous
  Country: NL (occurrence: NL)
  Receive Date: 20130627
  Receipt Date: 20130627
  Transmission Date: 20140414
  Serious: Yes (Congenital Anomaly, Other)
  Sender: FDA-Public Use
  Company Number: NL-ELI_LILLY_AND_COMPANY-NL201306006521

PATIENT
  Sex: 0

DRUGS (1)
  1. PROZAC [Suspect]
     Indication: MENTAL DISORDER
     Dosage: 20 MG, QD
     Route: 064

REACTIONS (2)
  - Femur-fibula-ulna complex [Not Recovered/Not Resolved]
  - Foetal exposure during pregnancy [Not Recovered/Not Resolved]
